FAERS Safety Report 5449833-3 (Version None)
Quarter: 2007Q3

REPORT INFORMATION
  Report Type: 
  Country: None (occurrence: None)
  Receive Date: 20070830
  Receipt Date: 20070822
  Transmission Date: 20080115
  Serious: Yes (Other)
  Sender: FDA-Public Use
  Company Number: 200710548BBE

PATIENT
  Age: 30 Year
  Sex: Male

DRUGS (2)
  1. HELIXATE [Suspect]
     Indication: FACTOR VIII DEFICIENCY
     Dates: start: 20020101
  2. HELIXATE [Suspect]
     Indication: FACTOR VIII DEFICIENCY
     Dates: start: 20070406

REACTIONS (1)
  - FACTOR VIII INHIBITION [None]
